FAERS Safety Report 13088523 (Version 2)
Quarter: 2017Q1

REPORT INFORMATION
  Report Type: Report from Study
  Country: None (occurrence: CA)
  Receive Date: 20170105
  Receipt Date: 20170109
  Transmission Date: 20170428
  Serious: Yes (Other)
  Sender: FDA-Public Use
  Company Number: CA-ABBVIE-15K-028-1498080-00

PATIENT
  Age: 53 Year
  Sex: Female

DRUGS (1)
  1. HUMIRA [Suspect]
     Active Substance: ADALIMUMAB
     Indication: RHEUMATOID ARTHRITIS
     Route: 058
     Dates: end: 2015

REACTIONS (5)
  - Pain in jaw [Unknown]
  - Tooth erosion [Unknown]
  - Fatigue [Unknown]
  - Tooth fracture [Unknown]
  - Gingival recession [Unknown]

NARRATIVE: CASE EVENT DATE: 201508
